FAERS Safety Report 16065118 (Version 2)
Quarter: 2025Q3

REPORT INFORMATION
  Report Type: Spontaneous
  Country: EU (occurrence: EU)
  Receive Date: 20190313
  Receipt Date: 20250722
  Transmission Date: 20251021
  Serious: Yes (Life-Threatening, Hospitalization, Other)
  Sender: AUROBINDO
  Company Number: EU-AUROBINDO-AUR-APL-2019-012390

PATIENT
  Age: 57 Year
  Sex: Male

DRUGS (8)
  1. ASPIRIN [Interacting]
     Active Substance: ASPIRIN
     Indication: Product used for unknown indication
     Route: 065
  2. LOSARTAN [Interacting]
     Active Substance: LOSARTAN
     Indication: Product used for unknown indication
     Route: 065
  3. CERTICAN [Interacting]
     Active Substance: EVEROLIMUS
     Indication: Chronic kidney disease
     Route: 048
     Dates: start: 20040820
  4. PRAVASTATIN [Interacting]
     Active Substance: PRAVASTATIN
     Indication: Product used for unknown indication
     Route: 065
  5. PANTOPRAZOLE [Concomitant]
     Active Substance: PANTOPRAZOLE
     Indication: Product used for unknown indication
     Route: 065
  6. LASIX [Concomitant]
     Active Substance: FUROSEMIDE
     Indication: Product used for unknown indication
     Route: 065
  7. MAGNESIUM [Concomitant]
     Active Substance: MAGNESIUM
     Indication: Product used for unknown indication
     Route: 065
  8. NYSTATIN [Concomitant]
     Active Substance: NYSTATIN
     Indication: Product used for unknown indication
     Route: 065

REACTIONS (8)
  - Angioedema [Recovered/Resolved]
  - Tongue haemorrhage [Recovered/Resolved]
  - Swollen tongue [Recovered/Resolved]
  - Drug interaction [Unknown]
  - Dyspnoea [Recovered/Resolved]
  - Erythropenia [Recovered/Resolved]
  - Oedema [Recovered/Resolved]
  - Normocytic anaemia [Recovered/Resolved]

NARRATIVE: CASE EVENT DATE: 20040822
